FAERS Safety Report 4497656-4 (Version None)
Quarter: 2004Q4

REPORT INFORMATION
  Report Type: 
  Country: None (occurrence: None)
  Receive Date: 20041104
  Receipt Date: 20041022
  Transmission Date: 20050328
  Serious: Yes (Other)
  Sender: FDA-Public Use
  Company Number: 2004-00591

PATIENT
  Age: 50 Year
  Sex: Female
  Weight: 115 kg

DRUGS (1)
  1. VELCADE [Suspect]
     Indication: PLASMACYTOMA
     Dosage: 1.30 MG/M2, IV BOLUS
     Route: 040
     Dates: start: 20040907, end: 20041007

REACTIONS (3)
  - BLOOD LACTATE DEHYDROGENASE INCREASED [None]
  - CONDITION AGGRAVATED [None]
  - PROTEINURIA [None]
